FAERS Safety Report 11639650 (Version 3)
Quarter: 2015Q4

REPORT INFORMATION
  Report Type: Report from Study
  Country: CA (occurrence: CA)
  Receive Date: 20151019
  Receipt Date: 20151224
  Transmission Date: 20160304
  Serious: Yes (Hospitalization, Other)
  Sender: FDA-Public Use
  Company Number: CA-ROCHE-1174604

PATIENT
  Age: 74 Year
  Sex: Female
  Weight: 70 kg

DRUGS (7)
  1. HUMIRA [Concomitant]
     Active Substance: ADALIMUMAB
  2. RABEPRAZOLE [Concomitant]
     Active Substance: RABEPRAZOLE
  3. ACTEMRA [Suspect]
     Active Substance: TOCILIZUMAB
     Indication: RHEUMATOID ARTHRITIS
     Route: 042
     Dates: start: 20110628
  4. ACTEMRA [Suspect]
     Active Substance: TOCILIZUMAB
     Route: 042
     Dates: start: 20140128
  5. TYLENOL WITH CODEINE [Concomitant]
     Active Substance: ACETAMINOPHEN\CODEINE PHOSPHATE
  6. ZOPICLONE [Concomitant]
     Active Substance: ZOPICLONE
  7. DICLOFENAC [Concomitant]
     Active Substance: DICLOFENAC

REACTIONS (16)
  - Intestinal prolapse [Unknown]
  - Respiratory rate increased [Unknown]
  - Blood pressure increased [Unknown]
  - Cystitis [Not Recovered/Not Resolved]
  - Injection site extravasation [Unknown]
  - Back pain [Unknown]
  - Bladder prolapse [Unknown]
  - Blood pressure increased [Unknown]
  - Infusion related reaction [Unknown]
  - Poor venous access [Unknown]
  - Injection site swelling [Unknown]
  - Injection site coldness [Unknown]
  - Heart rate decreased [Unknown]
  - Infection [Unknown]
  - Heart rate decreased [Unknown]
  - Hypotension [Not Recovered/Not Resolved]

NARRATIVE: CASE EVENT DATE: 20121224
